FAERS Safety Report 5639039-7 (Version None)
Quarter: 2008Q1

REPORT INFORMATION
  Report Type: 
  Country: None (occurrence: None)
  Receive Date: 20080226
  Receipt Date: 20080221
  Transmission Date: 20080703
  Serious: Yes (Life-Threatening, Hospitalization)
  Sender: FDA-Public Use
  Company Number: JP-SANOFI-SYNTHELABO-F01200701614

PATIENT
  Sex: Male
  Weight: 73.9 kg

DRUGS (10)
  1. GASTER D [Concomitant]
     Route: 048
     Dates: start: 20070612, end: 20070805
  2. CLARITIN [Concomitant]
     Dosage: 10 MG
     Route: 048
     Dates: start: 20070322, end: 20070521
  3. ZYRTEC [Concomitant]
     Dosage: 10 MG
     Route: 048
     Dates: start: 20070322, end: 20070816
  4. DEPAKENE [Concomitant]
     Route: 048
     Dates: end: 20070816
  5. PRAVASTATIN SODIUM [Concomitant]
     Indication: HYPERLIPIDAEMIA
     Dosage: 10 MG
     Route: 048
     Dates: end: 20070816
  6. TRICHLORMETHIAZIDE [Concomitant]
     Indication: HYPERTENSION
     Dosage: 2 MG
     Route: 048
     Dates: start: 20060525, end: 20070816
  7. DIOVAN [Concomitant]
     Indication: HYPERTENSION
     Route: 048
     Dates: start: 20070308, end: 20070816
  8. NORVASC [Concomitant]
     Indication: HYPERTENSION
     Route: 048
     Dates: start: 20060410, end: 20070816
  9. THYRADIN S [Suspect]
  10. CLOPIDOGREL [Suspect]
     Indication: CEREBRAL ISCHAEMIA
     Route: 048
     Dates: start: 20070308, end: 20070816

REACTIONS (6)
  - BLOOD CREATININE INCREASED [None]
  - BLOOD UREA INCREASED [None]
  - METASTASES TO PANCREAS [None]
  - PLEURAL EFFUSION [None]
  - SMALL INTESTINE CARCINOMA [None]
  - VENTRICULAR TACHYCARDIA [None]
